FAERS Safety Report 4681517-1 (Version None)
Quarter: 2005Q2

REPORT INFORMATION
  Report Type: 
  Country: None (occurrence: None)
  Receive Date: 20050602
  Receipt Date: 20050525
  Transmission Date: 20051028
  Serious: Yes (Death, Hospitalization, Other)
  Sender: FDA-Public Use
  Company Number: 2005079784

PATIENT
  Age: 57 Year
  Sex: Male
  Weight: 82 kg

DRUGS (5)
  1. LIPITOR [Suspect]
     Indication: BLOOD CHOLESTEROL INCREASED
     Dosage: 20 MG (20 MG, 1 IN 1 D); ORAL
     Route: 048
     Dates: end: 20050514
  2. FLUCONAZOLE [Suspect]
     Indication: LEUKAEMIA
     Dosage: ORAL
     Route: 048
     Dates: start: 20050504, end: 20050514
  3. ACYCLOVIR [Suspect]
     Indication: LEUKAEMIA
     Dosage: ORAL
     Route: 048
     Dates: start: 20050504, end: 20050514
  4. MYLOTART (GEMTUZUMAB OZOGAMICIN) [Suspect]
     Indication: LEUKAEMIA
     Dates: start: 20050504
  5. STOOL SOFTENER (DOCUSATE SODIUM) [Concomitant]

REACTIONS (6)
  - GENERAL PHYSICAL HEALTH DETERIORATION [None]
  - HEPATIC FAILURE [None]
  - LEUKAEMIA RECURRENT [None]
  - MULTI-ORGAN FAILURE [None]
  - PYREXIA [None]
  - RENAL FAILURE [None]
